FAERS Safety Report 20617528 (Version 1)
Quarter: 2022Q1

REPORT INFORMATION
  Report Type: Spontaneous
  Country: DE (occurrence: DE)
  Receive Date: 20220321
  Receipt Date: 20220321
  Transmission Date: 20220424
  Serious: Yes (Hospitalization)
  Sender: FDA-Public Use
  Company Number: DE-DCGMA-22197109

PATIENT
  Age: 69 Year
  Sex: Female
  Weight: 99 kg

DRUGS (1)
  1. XARELTO [Suspect]
     Active Substance: RIVAROXABAN
     Indication: Haemorrhagic diathesis
     Dosage: 20 MG
     Route: 048
     Dates: start: 201708, end: 20220209

REACTIONS (2)
  - Coagulopathy [Unknown]
  - Hepatitis acute [Unknown]

NARRATIVE: CASE EVENT DATE: 20220207
